FAERS Safety Report 6934139-3 (Version None)
Quarter: 2010Q3

REPORT INFORMATION
  Report Type: 
  Country: None (occurrence: None)
  Receive Date: 20100820
  Receipt Date: 20100810
  Transmission Date: 20110219
  Serious: Yes (Hospitalization)
  Sender: FDA-Public Use
  Company Number: US-JNJFOC-20100803432

PATIENT
  Sex: Male
  Weight: 79.38 kg

DRUGS (11)
  1. REMICADE [Suspect]
     Indication: CROHN'S DISEASE
     Dosage: EVERY 4-6 WEEKS
     Route: 042
  2. REMICADE [Suspect]
     Dosage: EVERY 4-6 WEEKS
     Route: 042
  3. ASACOL [Concomitant]
     Indication: CROHN'S DISEASE
  4. CREON [Concomitant]
     Indication: PANCREATIC ENZYMES
  5. PERCOCET [Concomitant]
     Indication: PAIN
  6. INSULIN [Concomitant]
     Indication: STEROID THERAPY
  7. SANDOSTATIN [Concomitant]
  8. OPIUM TINCTURE [Concomitant]
  9. MARIJUANA [Concomitant]
  10. ZEGERID [Concomitant]
  11. CORTICOSTEROIDS [Concomitant]

REACTIONS (4)
  - CROHN'S DISEASE [None]
  - NASOPHARYNGITIS [None]
  - NAUSEA [None]
  - VEIN DISORDER [None]
